FAERS Safety Report 4649145-1 (Version None)
Quarter: 2005Q2

REPORT INFORMATION
  Report Type: 
  Country: None (occurrence: None)
  Receive Date: 20050429
  Receipt Date: 20050318
  Transmission Date: 20051028
  Serious: Yes (Life-Threatening)
  Sender: FDA-Public Use
  Company Number: DE-GLAXOSMITHKLINE-D0046191A

PATIENT
  Age: 51 Year
  Sex: Female

DRUGS (1)
  1. HYCAMTIN [Suspect]
     Route: 065

REACTIONS (5)
  - ANAEMIA [None]
  - LEUKOPENIA [None]
  - MUCOSAL ULCERATION [None]
  - SKIN ULCER [None]
  - THROMBOCYTOPENIA [None]
